FAERS Safety Report 24360702 (Version 1)
Quarter: 2024Q3

REPORT INFORMATION
  Report Type: Report from Study
  Country: DE (occurrence: DE)
  Receive Date: 20240925
  Receipt Date: 20240925
  Transmission Date: 20241016
  Serious: Yes (Hospitalization, Other)
  Sender: SANDOZ
  Company Number: DE-EMA-DD-20240917-7482715-152527

PATIENT
  Age: 37 Year
  Sex: Female
  Weight: 63 kg

DRUGS (3)
  1. FILGRASTIM [Suspect]
     Active Substance: FILGRASTIM
     Indication: Myelosuppression
     Dosage: 2 DF, QD (30 MU PER 0.5 ML)
     Route: 058
     Dates: start: 20140212
  2. FILGRASTIM [Suspect]
     Active Substance: FILGRASTIM
     Indication: Stem cell donor
     Dosage: 3300 UG
     Route: 058
     Dates: start: 20140207, end: 20140212
  3. DIENOGEST\ETHINYL ESTRADIOL [Concomitant]
     Active Substance: DIENOGEST\ETHINYL ESTRADIOL
     Indication: Menstrual disorder
     Dosage: UNK
     Route: 048

REACTIONS (14)
  - Endometriosis [Recovered/Resolved with Sequelae]
  - Peritoneal disorder [Recovered/Resolved with Sequelae]
  - Peritonitis [Recovered/Resolved with Sequelae]
  - Gastrointestinal disorder [Recovered/Resolved with Sequelae]
  - Abdominal hernia [Unknown]
  - Synovial cyst [Recovered/Resolved with Sequelae]
  - Endometriosis [Unknown]
  - Nasopharyngitis [Recovered/Resolved]
  - Blood potassium decreased [Recovered/Resolved]
  - Osteoarthritis [Not Recovered/Not Resolved]
  - Headache [Recovered/Resolved]
  - Bone pain [Recovered/Resolved]
  - Bone pain [Recovered/Resolved]
  - Bone pain [Recovered/Resolved]

NARRATIVE: CASE EVENT DATE: 20140101
